FAERS Safety Report 14947588 (Version 1)
Quarter: 2018Q2

REPORT INFORMATION
  Report Type: Spontaneous
  Country: US (occurrence: US)
  Receive Date: 20180529
  Receipt Date: 20180529
  Transmission Date: 20180711
  Serious: No
  Sender: FDA-Public Use
  Company Number: US-UPSHER-SMITH LABORATORIES, LLC-2017USL00077

PATIENT
  Sex: Female
  Weight: 81.18 kg

DRUGS (15)
  1. GARLIC. [Concomitant]
     Active Substance: GARLIC
     Dosage: UNK, 1X/DAY
  2. VASERETIC [Concomitant]
     Active Substance: ENALAPRIL MALEATE\HYDROCHLOROTHIAZIDE
     Dosage: UNK, 2X/DAY
  3. MULTIVITAMIN [Concomitant]
     Active Substance: VITAMINS
  4. ENZYMATIC DIGESTIVE AID [Concomitant]
     Dosage: UNK, 1X/DAY
  5. KLOR-CON [Suspect]
     Active Substance: POTASSIUM CHLORIDE
     Indication: HYPOKALAEMIA
     Dosage: 8 UNK, UNK
  6. METHYLSULFONYLMETHANE [Concomitant]
     Active Substance: DIMETHYL SULFONE
     Dosage: UNK, 1X/DAY
  7. VITAMIN B MULTIVITAMIN [Concomitant]
     Dosage: UNK, 1X/DAY
  8. COSAMIN DS [Concomitant]
     Dosage: UNK, 1X/DAY
  9. COENZYME Q10 [Concomitant]
     Active Substance: UBIDECARENONE
     Dosage: UNK, 1X/DAY
  10. EVENING PRIMROSE OIL [Concomitant]
     Active Substance: EVENING PRIMROSE OIL\HERBALS
     Dosage: UNK, 1X/DAY
  11. VITAMIN C [Concomitant]
     Active Substance: ASCORBIC ACID
     Dosage: UNK, 1X/DAY
  12. MAGENSIUM [Concomitant]
     Dosage: UNK, 1X/DAY
  13. OMEGA 3 [Concomitant]
     Active Substance: OMEGA-3 FATTY ACIDS
     Dosage: UNK, 1X/DAY
  14. CALCIUM WITH K2 [Concomitant]
     Dosage: UNK, 1X/DAY
  15. BIOTIN [Concomitant]
     Active Substance: BIOTIN
     Dosage: UNK, 1X/DAY

REACTIONS (2)
  - Eczema [Not Recovered/Not Resolved]
  - Pruritus [Not Recovered/Not Resolved]
